FAERS Safety Report 6219523-8 (Version None)
Quarter: 2009Q2

REPORT INFORMATION
  Report Type: 
  Country: None (occurrence: None)
  Receive Date: 20090609
  Receipt Date: 20090528
  Transmission Date: 20091009
  Serious: Yes (Hospitalization)
  Sender: FDA-Public Use
  Company Number: GB-PFIZER INC-2009215680

PATIENT
  Age: 50 Year

DRUGS (7)
  1. SUNITINIB MALATE [Suspect]
     Indication: BREAST CANCER
     Dosage: 37.5 MG, 1X/DAY
     Route: 048
     Dates: start: 20081023
  2. *CAPECITABINE [Suspect]
     Indication: BREAST CANCER
     Dosage: 1150 MG, 2X/DAY, DAY 1-14 EVERY 3 WEEKS
     Route: 048
     Dates: start: 20081023
  3. TRAMADOL HCL [Suspect]
     Indication: PAIN
     Dosage: 50 MG, 4X/DAY
     Dates: start: 20090308
  4. CYCLIZINE [Concomitant]
     Indication: NAUSEA
     Dosage: 50 MG, 3X/DAY
     Dates: start: 20081110
  5. METOCLOPRAMIDE [Concomitant]
     Indication: NAUSEA
     Dosage: 10 MG, 3X/DAY
     Dates: start: 20081110
  6. TEMAZEPAM [Concomitant]
     Indication: INSOMNIA
     Dosage: 10 MG, 1X/DAY
     Dates: start: 20090505
  7. ZOLEDRONIC ACID [Concomitant]
     Indication: METASTASES TO BONE
     Dosage: 4 MG, MONTHLY
     Dates: start: 20071008

REACTIONS (6)
  - BLOOD PRESSURE INCREASED [None]
  - CONVULSION [None]
  - GRAND MAL CONVULSION [None]
  - INSOMNIA [None]
  - NAUSEA [None]
  - PARAESTHESIA [None]
